FAERS Safety Report 6638372-X (Version None)
Quarter: 2010Q1

REPORT INFORMATION
  Report Type: 
  Country: None (occurrence: None)
  Receive Date: 20100317
  Receipt Date: 20100310
  Transmission Date: 20100710
  Serious: Yes (Other)
  Sender: FDA-Public Use
  Company Number: A0849519A

PATIENT
  Age: 61 Year
  Sex: Female

DRUGS (1)
  1. PAXIL CR [Suspect]
     Indication: MENOPAUSAL SYMPTOMS
     Dosage: 25MG ALTERNATE DAYS
     Route: 048
     Dates: start: 20080101

REACTIONS (6)
  - BALANCE DISORDER [None]
  - HALLUCINATION [None]
  - HYPERHIDROSIS [None]
  - INSOMNIA [None]
  - NIGHTMARE [None]
  - WITHDRAWAL SYNDROME [None]
